FAERS Safety Report 4987827-2 (Version None)
Quarter: 2006Q2

REPORT INFORMATION
  Report Type: 
  Country: None (occurrence: None)
  Receive Date: 20060426
  Receipt Date: 20060407
  Transmission Date: 20061013
  Serious: Yes (Hospitalization)
  Sender: FDA-Public Use
  Company Number: JP200604001304

PATIENT
  Age: 13 Year
  Sex: Male

DRUGS (1)
  1. HUMATROPE [Suspect]
     Indication: DWARFISM
     Dosage: 1.6 MG, 6/W, SUBCUTANEOUS
     Route: 058
     Dates: start: 20051014, end: 20060407

REACTIONS (1)
  - EPIPHYSIOLYSIS [None]
